FAERS Safety Report 8548710-9 (Version None)
Quarter: 2012Q3

REPORT INFORMATION
  Report Type: 
  Country: None (occurrence: None)
  Receive Date: 20120730
  Receipt Date: 20120723
  Transmission Date: 20120928
  Serious: Yes (Other)
  Sender: FDA-Public Use
  Company Number: PHHY2012CA006496

PATIENT
  Sex: Female

DRUGS (1)
  1. FEMARA [Suspect]
     Indication: BREAST CANCER
     Dosage: 2.5 MG, DAILY
     Route: 048
     Dates: start: 20100901

REACTIONS (10)
  - NEOPLASM [None]
  - WEIGHT INCREASED [None]
  - GAIT DISTURBANCE [None]
  - ALOPECIA [None]
  - BREAST INFECTION [None]
  - DEPRESSION [None]
  - LACRIMAL DUCT NEOPLASM [None]
  - NIGHT SWEATS [None]
  - ARTHRALGIA [None]
  - DEPRESSED MOOD [None]
